FAERS Safety Report 5028126-2 (Version None)
Quarter: 2006Q2

REPORT INFORMATION
  Report Type: 
  Country: None (occurrence: None)
  Receive Date: 20060613
  Receipt Date: 20060523
  Transmission Date: 20061013
  Serious: Yes (Hospitalization)
  Sender: FDA-Public Use
  Company Number: 2006-04-0123

PATIENT
  Age: 72 Year
  Sex: Male
  Weight: 80 kg

DRUGS (2)
  1. INTRON A [Suspect]
     Indication: METASTATIC RENAL CELL CARCINOMA
     Dosage: 10 MU SUBCUTANEOUS
     Route: 058
     Dates: start: 20040802, end: 20060301
  2. INTRON A [Suspect]
     Indication: METASTATIC RENAL CELL CARCINOMA
     Dosage: 10 MU SUBCUTANEOUS
     Route: 058
     Dates: start: 20060324

REACTIONS (15)
  - BLOOD AMYLASE INCREASED [None]
  - BLOOD FIBRINOGEN INCREASED [None]
  - BODY TEMPERATURE INCREASED [None]
  - C-REACTIVE PROTEIN INCREASED [None]
  - FALL [None]
  - HAEMOGLOBIN DECREASED [None]
  - HAEMORRHOIDS [None]
  - INFLAMMATION [None]
  - LUNG INFECTION [None]
  - MALAISE [None]
  - MUSCULOSKELETAL CHEST PAIN [None]
  - POST PROCEDURAL HAEMORRHAGE [None]
  - RECTAL HAEMORRHAGE [None]
  - RIB FRACTURE [None]
  - SYNCOPE [None]
